FAERS Safety Report 7200880-0 (Version None)
Quarter: 2010Q4

REPORT INFORMATION
  Report Type: 
  Country: None (occurrence: None)
  Receive Date: 20101228
  Receipt Date: 20101217
  Transmission Date: 20110411
  Serious: Yes (Other)
  Sender: FDA-Public Use
  Company Number: US-PFIZER INC-2010177320

PATIENT
  Sex: Male
  Weight: 104 kg

DRUGS (6)
  1. TORISEL [Suspect]
     Indication: HEPATIC LESION
     Dosage: 25 MG, WEEKLY
     Dates: start: 20100801
  2. TORISEL [Suspect]
     Indication: LUNG DISORDER
  3. COZAAR [Concomitant]
     Indication: HYPERTENSION
     Dosage: UNK
  4. AMLODIPINE [Concomitant]
     Indication: HEART RATE DECREASED
     Dosage: 5 MG, UNK
  5. METOPROLOL [Concomitant]
     Indication: HEART RATE DECREASED
     Dosage: 25 MG, UNK
  6. SIMVASTATIN [Concomitant]
     Dosage: 20 MG, UNK

REACTIONS (6)
  - ABDOMINAL DISCOMFORT [None]
  - ACTIVITIES OF DAILY LIVING IMPAIRED [None]
  - BLISTER [None]
  - DYSPNOEA [None]
  - GAIT DISTURBANCE [None]
  - PULMONARY CONGESTION [None]
